FAERS Safety Report 5524349-4 (Version None)
Quarter: 2007Q4

REPORT INFORMATION
  Report Type: 
  Country: None (occurrence: None)
  Receive Date: 20071121
  Receipt Date: 20071114
  Transmission Date: 20080405
  Serious: Yes (Hospitalization, Other)
  Sender: FDA-Public Use
  Company Number: US-PFIZER INC-2007095832

PATIENT
  Sex: Male
  Weight: 86.6 kg

DRUGS (11)
  1. CELEBREX [Suspect]
     Indication: BACK PAIN
     Route: 048
     Dates: start: 20070904, end: 20070912
  2. MEDROL [Suspect]
     Indication: BACK PAIN
     Dates: start: 20070830, end: 20070903
  3. NAPRELAN ^ELAN^ [Suspect]
     Indication: BACK PAIN
     Dates: start: 20070913, end: 20071001
  4. FISH OIL [Concomitant]
     Indication: HYPERLIPIDAEMIA
  5. PROSCAR [Concomitant]
     Indication: BENIGN PROSTATIC HYPERPLASIA
  6. VITAMIN E [Concomitant]
     Indication: SUPPLEMENTATION THERAPY
  7. ASCORBIC ACID [Concomitant]
     Indication: SUPPLEMENTATION THERAPY
  8. SAW PALMETTO [Concomitant]
     Indication: SUPPLEMENTATION THERAPY
  9. LOPRESSOR [Concomitant]
     Indication: HYPERTENSION
  10. HYDROCHLOROTHIAZIDE [Concomitant]
     Indication: HYPERTENSION
  11. CALCIUM WITH VITAMIN D [Concomitant]
     Indication: SUPPLEMENTATION THERAPY

REACTIONS (1)
  - MUSCULAR WEAKNESS [None]
